FAERS Safety Report 22873528 (Version 2)
Quarter: 2023Q4

REPORT INFORMATION
  Report Type: Spontaneous
  Country: US (occurrence: US)
  Receive Date: 20230828
  Receipt Date: 20231128
  Transmission Date: 20240110
  Serious: Yes (Death, Hospitalization)
  Sender: FDA-Public Use
  Company Number: US-AMNEAL PHARMACEUTICALS-2023-AMRX-02964

PATIENT
  Sex: Male
  Weight: 76.19 kg

DRUGS (1)
  1. RYTARY [Suspect]
     Active Substance: CARBIDOPA\LEVODOPA
     Indication: Parkinson^s disease
     Dosage: 4 CAPSULES, BID
     Route: 048

REACTIONS (4)
  - Adverse event [Fatal]
  - Fall [Unknown]
  - Head injury [Unknown]
  - Infection [Unknown]
